FAERS Safety Report 8333569-5 (Version None)
Quarter: 2012Q2

REPORT INFORMATION
  Report Type: 
  Country: None (occurrence: None)
  Receive Date: 20120503
  Receipt Date: 20120423
  Transmission Date: 20120825
  Serious: Yes (Other)
  Sender: FDA-Public Use
  Company Number: PHHY2012DE019671

PATIENT
  Sex: Male
  Weight: 78 kg

DRUGS (9)
  1. ATORVASTATIN CALCIUM [Concomitant]
     Dosage: 20 MG/DAY
  2. RASILEZ [Suspect]
     Indication: HYPERTENSION
     Dosage: 150 MG, QD
     Route: 048
     Dates: start: 20110320, end: 20110929
  3. RASILEZ [Suspect]
     Dosage: 150 MG, QD
     Route: 048
     Dates: start: 20111017, end: 20111028
  4. BUDENOFALK [Concomitant]
     Dosage: 1 DF, BID
     Dates: start: 20120323, end: 20120330
  5. ATORVASTATIN CALCIUM [Concomitant]
     Dosage: 10 MG/DAY
  6. INDAPAMIDE [Concomitant]
     Dosage: 1.5 MG/DAY
  7. RAMIPRIL [Concomitant]
     Indication: HYPERTENSION
     Dosage: 10 MG/DAY
  8. ASPIRIN [Concomitant]
     Indication: HYPERTENSION
     Dosage: 100 MG/DAY
     Route: 048
  9. LERCANIDIPINE [Concomitant]
     Dosage: 10 MG/DAY

REACTIONS (5)
  - DIVERTICULUM [None]
  - IRRITABLE BOWEL SYNDROME [None]
  - DIARRHOEA [None]
  - GASTROINTESTINAL OEDEMA [None]
  - FLATULENCE [None]
